FAERS Safety Report 25791498 (Version 1)
Quarter: 2025Q3

REPORT INFORMATION
  Report Type: Spontaneous
  Country: AU (occurrence: AU)
  Receive Date: 20250911
  Receipt Date: 20250911
  Transmission Date: 20251020
  Serious: Yes (Other)
  Sender: ELI LILLY AND COMPANY
  Company Number: AU-Merck Healthcare KGaA-2025044574

PATIENT
  Age: 39 Year
  Sex: Male

DRUGS (3)
  1. CETUXIMAB [Suspect]
     Active Substance: CETUXIMAB
     Indication: Colorectal cancer metastatic
     Route: 065
  2. BRAFTOVI [Suspect]
     Active Substance: ENCORAFENIB
     Indication: Colorectal cancer metastatic
     Route: 065
  3. RITALIN [Concomitant]
     Active Substance: METHYLPHENIDATE HYDROCHLORIDE
     Indication: Product used for unknown indication

REACTIONS (5)
  - Hyperbilirubinaemia [Unknown]
  - Cholangitis [Unknown]
  - Bacterial sepsis [Unknown]
  - Malignant melanoma stage 0 [Unknown]
  - Palmar-plantar erythrodysaesthesia syndrome [Unknown]
